FAERS Safety Report 7398862-1 (Version None)
Quarter: 2011Q2

REPORT INFORMATION
  Report Type: 
  Country: None (occurrence: None)
  Receive Date: 20110407
  Receipt Date: 20110325
  Transmission Date: 20111010
  Serious: Yes (Death)
  Sender: FDA-Public Use
  Company Number: US-CELGENEUS-163-21880-11013023

PATIENT
  Sex: Female

DRUGS (7)
  1. COUMADIN [Concomitant]
     Route: 065
  2. NORCO [Concomitant]
     Route: 065
  3. LEVAQUIN [Concomitant]
     Route: 065
  4. TEMAZEPAM [Concomitant]
     Route: 065
  5. REVLIMID [Suspect]
     Indication: MULTIPLE MYELOMA
     Dosage: 10 MILLIGRAM
     Route: 048
     Dates: start: 20100813, end: 20100101
  6. AMLODIPINE [Concomitant]
     Route: 065
  7. ACYCLOVIR [Concomitant]
     Route: 065

REACTIONS (1)
  - MULTIPLE MYELOMA [None]
